FAERS Safety Report 20315140 (Version 1)
Quarter: 2022Q1

REPORT INFORMATION
  Report Type: Spontaneous
  Country: US (occurrence: US)
  Receive Date: 20220110
  Receipt Date: 20220110
  Transmission Date: 20220423
  Serious: No
  Sender: FDA-Public Use
  Company Number: US-TELIGENT, INC-20211100111

PATIENT
  Age: 59 Year
  Sex: Male
  Weight: 106.57 kg

DRUGS (2)
  1. ECONAZOLE NITRATE [Suspect]
     Active Substance: ECONAZOLE NITRATE
     Indication: Groin infection
     Dosage: UNK, BID
     Route: 061
     Dates: start: 20211111, end: 202111
  2. TRIOLANDREN [BENZYL ALCOHOL;TESTOSTERONE PROPIONATE;TESTOSTERONE UNDEC [Concomitant]

REACTIONS (4)
  - Genital erythema [Not Recovered/Not Resolved]
  - Genital rash [Not Recovered/Not Resolved]
  - Genital burning sensation [Not Recovered/Not Resolved]
  - Pruritus genital [Not Recovered/Not Resolved]

NARRATIVE: CASE EVENT DATE: 20211101
